FAERS Safety Report 23552124 (Version 1)
Quarter: 2024Q1

REPORT INFORMATION
  Report Type: Spontaneous
  Country: US (occurrence: US)
  Receive Date: 20240222
  Receipt Date: 20240222
  Transmission Date: 20240410
  Serious: Yes (Other)
  Sender: FDA-Public Use
  Company Number: US-MLMSERVICE-20240201-4809943-1

PATIENT
  Age: 14 Year
  Sex: Female

DRUGS (5)
  1. PREDNISONE [Suspect]
     Active Substance: PREDNISONE
     Indication: Erythema multiforme
     Dosage: UNKNOWN
     Route: 065
  2. PREDNISONE [Suspect]
     Active Substance: PREDNISONE
     Indication: Oral lichenoid reaction
  3. COLCHICINE [Concomitant]
     Active Substance: COLCHICINE
     Indication: Mouth ulceration
     Dosage: UNKNOWN
     Route: 065
  4. DOXYCYCLINE [Concomitant]
     Active Substance: DOXYCYCLINE
     Indication: Oral lichenoid reaction
     Dosage: UNKNOWN
     Route: 065
  5. DOXYCYCLINE [Concomitant]
     Active Substance: DOXYCYCLINE
     Indication: Evidence based treatment

REACTIONS (1)
  - Osteonecrosis [Unknown]
